APPROVED DRUG PRODUCT: JENCYCLA
Active Ingredient: NORETHINDRONE
Strength: 0.35MG
Dosage Form/Route: TABLET;ORAL-28
Application: A091323 | Product #001 | TE Code: AB2
Applicant: LUPIN LTD
Approved: Mar 28, 2013 | RLD: No | RS: No | Type: RX